FAERS Safety Report 8529752 (Version 6)
Quarter: 2013Q1

REPORT INFORMATION
  Report Type: Report from Study
  Country: DE (occurrence: DE)
  Receive Date: 20120425
  Receipt Date: 20130325
  Transmission Date: 20140127
  Serious: Yes (Life-Threatening, Hospitalization, Other)
  Sender: FDA-Public Use
  Company Number: DE-BIOGENIDEC-2012BI013665

PATIENT
  Sex: Male

DRUGS (7)
  1. TYSABRI [Suspect]
     Indication: RELAPSING-REMITTING MULTIPLE SCLEROSIS
     Route: 042
     Dates: start: 20111201, end: 20120213
  2. TYSABRI [Suspect]
     Indication: RELAPSING-REMITTING MULTIPLE SCLEROSIS
     Dates: start: 20120412
  3. CARBAMAZEPINE [Concomitant]
  4. UNKNOWN MEDICATION [Concomitant]
  5. AMANTADINE [Concomitant]
     Indication: FATIGUE
  6. FLUOXETINE [Concomitant]
  7. PREGABALIN [Concomitant]
     Indication: DIABETIC NEUROPATHY

REACTIONS (3)
  - Ketoacidosis [Recovered/Resolved]
  - Sepsis [Recovered/Resolved]
  - Pneumonia [Recovered/Resolved]
